FAERS Safety Report 7530681-5 (Version None)
Quarter: 2011Q2

REPORT INFORMATION
  Report Type: 
  Country: None (occurrence: None)
  Receive Date: 20110607
  Receipt Date: 20110606
  Transmission Date: 20111010
  Serious: Yes (Other)
  Sender: FDA-Public Use
  Company Number: GB-AMGEN-QUU411196

PATIENT
  Sex: Female
  Weight: 58 kg

DRUGS (4)
  1. NEULASTA [Suspect]
     Indication: CHEMOTHERAPY
     Dosage: UNK UNK, UNK
     Route: 065
  2. EPIRUBICIN [Concomitant]
  3. FLUOROURACIL [Concomitant]
  4. CYCLOPHOSPHAMIDE [Concomitant]

REACTIONS (3)
  - DRUG INEFFECTIVE [None]
  - BETA HAEMOLYTIC STREPTOCOCCAL INFECTION [None]
  - NEUTROPHIL COUNT DECREASED [None]
